FAERS Safety Report 18436054 (Version 1)
Quarter: 2020Q4

REPORT INFORMATION
  Report Type: Spontaneous
  Country: SE (occurrence: SE)
  Receive Date: 20201028
  Receipt Date: 20201028
  Transmission Date: 20210114
  Serious: Yes (Other)
  Sender: FDA-Public Use
  Company Number: NVSC2020SE283883

PATIENT
  Age: 72 Year
  Sex: Female

DRUGS (1)
  1. BISOPROLOL [Suspect]
     Active Substance: BISOPROLOL
     Indication: PRODUCT USED FOR UNKNOWN INDICATION
     Dosage: UNK (NR OF PACKAGES: 2,PACK SIZE: 100)
     Route: 065

REACTIONS (2)
  - Drug ineffective [Unknown]
  - Cardiac fibrillation [Unknown]
